FAERS Safety Report 10048455 (Version 2)
Quarter: 2014Q2

REPORT INFORMATION
  Report Type: Spontaneous
  Country: JP (occurrence: JP)
  Receive Date: 20140331
  Receipt Date: 20140404
  Transmission Date: 20141212
  Serious: Yes (Death)
  Sender: FDA-Public Use
  Company Number: JP-PFIZER INC-2014088915

PATIENT
  Age: 60 Year
  Sex: Male

DRUGS (4)
  1. HALCION [Suspect]
     Route: 048
  2. FLUNITRAZEPAM [Concomitant]
  3. ZYPREXA [Concomitant]
  4. INVEGA SUSTENNA [Concomitant]

REACTIONS (1)
  - Death [Fatal]
